FAERS Safety Report 12158079 (Version 1)
Quarter: 2016Q1

REPORT INFORMATION
  Report Type: Spontaneous
  Country: US (occurrence: US)
  Receive Date: 20160308
  Receipt Date: 20160308
  Transmission Date: 20160526
  Serious: No
  Sender: FDA-Public Use
  Company Number: US-JNJFOC-20150211390

PATIENT
  Sex: Female

DRUGS (4)
  1. COLACE [Concomitant]
     Active Substance: DOCUSATE SODIUM
  2. ZYRTEC [Concomitant]
     Active Substance: CETIRIZINE HYDROCHLORIDE
  3. SERTRALINE [Concomitant]
     Active Substance: SERTRALINE HYDROCHLORIDE
  4. IMBRUVICA [Suspect]
     Active Substance: IBRUTINIB
     Indication: LYMPHOMA
     Route: 048
     Dates: start: 20141121

REACTIONS (6)
  - Pyrexia [Unknown]
  - Malaise [Unknown]
  - Visual impairment [Unknown]
  - Rash [Unknown]
  - Bone pain [Unknown]
  - Myalgia [Unknown]
